FAERS Safety Report 8071000-8 (Version None)
Quarter: 2012Q1

REPORT INFORMATION
  Report Type: 
  Country: None (occurrence: None)
  Receive Date: 20120125
  Receipt Date: 20120119
  Transmission Date: 20120608
  Serious: Yes (Life-Threatening)
  Sender: FDA-Public Use
  Company Number: CHPA2012US001750

PATIENT
  Age: 37 Year
  Sex: Female

DRUGS (1)
  1. EXCEDRIN EXTRA STRENGTH TABLETS [Suspect]
     Indication: HEADACHE
     Dosage: 2 DF, ONCE/SINGLE
     Route: 048
     Dates: start: 20120113, end: 20120113

REACTIONS (12)
  - ANXIETY [None]
  - CRYING [None]
  - HEADACHE [None]
  - INSOMNIA [None]
  - FEELING ABNORMAL [None]
  - FEELING JITTERY [None]
  - NAUSEA [None]
  - HEAD DISCOMFORT [None]
  - PAIN [None]
  - FEELING HOT [None]
  - DISTRACTIBILITY [None]
  - HEART RATE INCREASED [None]
